FAERS Safety Report 20685673 (Version 1)
Quarter: 2022Q2

REPORT INFORMATION
  Report Type: Spontaneous
  Country: US (occurrence: None)
  Receive Date: 20220407
  Receipt Date: 20220407
  Transmission Date: 20220721
  Serious: Yes (Hospitalization)
  Sender: FDA-Public Use
  Company Number: 2022A133964

PATIENT
  Age: 20085 Day
  Sex: Female
  Weight: 58.1 kg

DRUGS (2)
  1. FASENRA [Suspect]
     Active Substance: BENRALIZUMAB
     Indication: Asthma
     Route: 058
     Dates: start: 20220317
  2. SYMBICORT [Suspect]
     Active Substance: BUDESONIDE\FORMOTEROL FUMARATE DIHYDRATE
     Indication: Asthma
     Dosage: 2 PUFFS TWICE A DAY
     Route: 055

REACTIONS (10)
  - Anaphylactic reaction [Recovered/Resolved with Sequelae]
  - Headache [Unknown]
  - Chills [Unknown]
  - Flushing [Unknown]
  - Rash [Unknown]
  - Dizziness [Unknown]
  - Chest discomfort [Unknown]
  - Paraesthesia [Unknown]
  - Dyspnoea [Unknown]
  - Asthma [Unknown]

NARRATIVE: CASE EVENT DATE: 20220223
